FAERS Safety Report 4469367-2 (Version None)
Quarter: 2004Q4

REPORT INFORMATION
  Report Type: 
  Country: None (occurrence: None)
  Receive Date: 20041008
  Receipt Date: 20040315
  Transmission Date: 20050328
  Serious: No
  Sender: FDA-Public Use
  Company Number: US-BRISTOL-MYERS SQUIBB COMPANY-12532784

PATIENT
  Age: 69 Year
  Sex: Female
  Weight: 56 kg

DRUGS (4)
  1. AVAPRO [Suspect]
     Indication: HYPERTENSION
     Dosage: DOSING: 12-DEC-03 150MG DAILY ON 03-JAN-04 INCREASED TO 300MG DAILY
     Route: 048
     Dates: start: 20031212, end: 20040312
  2. CRESTOR [Suspect]
  3. FOSAMAX [Concomitant]
  4. BEXTRA [Concomitant]

REACTIONS (4)
  - DIZZINESS [None]
  - HEADACHE [None]
  - MYALGIA [None]
  - URINARY TRACT INFECTION [None]
